FAERS Safety Report 14746475 (Version 1)
Quarter: 2018Q2

REPORT INFORMATION
  Report Type: Spontaneous
  Country: TR (occurrence: TR)
  Receive Date: 20180411
  Receipt Date: 20180411
  Transmission Date: 20180711
  Serious: Yes (Hospitalization)
  Sender: FDA-Public Use
  Company Number: TR-PFIZER INC-2018072062

PATIENT
  Age: 76 Year
  Sex: Female

DRUGS (1)
  1. SUTENT [Suspect]
     Active Substance: SUNITINIB MALATE
     Indication: GASTROINTESTINAL STROMAL TUMOUR
     Dosage: 37.5 MG, UNK (12.5 + 25 MG)

REACTIONS (11)
  - Peripheral swelling [Recovered/Resolved]
  - Abdominal pain upper [Recovered/Resolved]
  - Pruritus generalised [Recovered/Resolved]
  - Dyspnoea [Recovered/Resolved]
  - Swelling face [Recovered/Resolved]
  - White blood cell count decreased [Recovered/Resolved]
  - Swollen tongue [Recovered/Resolved]
  - Rash generalised [Recovered/Resolved]
  - Haemoglobin decreased [Recovered/Resolved]
  - Pharyngeal oedema [Recovered/Resolved]
  - Myalgia [Recovered/Resolved]
